FAERS Safety Report 5221998-8 (Version None)
Quarter: 2007Q1

REPORT INFORMATION
  Report Type: 
  Country: None (occurrence: None)
  Receive Date: 20070129
  Receipt Date: 20060313
  Transmission Date: 20070707
  Serious: No
  Sender: FDA-Public Use
  Company Number: US-GLAXOSMITHKLINE-A0597316A

PATIENT
  Sex: Female

DRUGS (1)
  1. WELLBUTRIN [Suspect]
     Indication: DEPRESSION
     Dosage: 150MG SEE DOSAGE TEXT
     Route: 048

REACTIONS (7)
  - BLOOD IMMUNOGLOBULIN G INCREASED [None]
  - HYPERAESTHESIA [None]
  - MIDDLE INSOMNIA [None]
  - PALPITATIONS [None]
  - PRURITUS [None]
  - TINNITUS [None]
  - URTICARIA [None]
